FAERS Safety Report 11364460 (Version 1)
Quarter: 2015Q3

REPORT INFORMATION
  Report Type: Spontaneous
  Country: US (occurrence: None)
  Receive Date: 20150810
  Receipt Date: 20150810
  Transmission Date: 20151125
  Serious: No
  Sender: FDA-Public Use
  Company Number: None

PATIENT
  Age: 49 Year
  Sex: Female

DRUGS (6)
  1. GABAPENTIN. [Concomitant]
     Active Substance: GABAPENTIN
  2. ACYCLOVIR. [Concomitant]
     Active Substance: ACYCLOVIR
  3. ARMOUR THYRO [Concomitant]
  4. LOMOTIL [Concomitant]
     Active Substance: ATROPINE SULFATE\DIPHENOXYLATE HYDROCHLORIDE
  5. ASPIRIN LOW DOSE [Concomitant]
     Active Substance: ASPIRIN
  6. GRANIX [Suspect]
     Active Substance: TBO-FILGRASTIM
     Indication: COLON CANCER
     Dosage: 300 MCG, QD X 5 POST CHEMO
     Route: 058
     Dates: start: 20150624

REACTIONS (1)
  - Bone pain [None]

NARRATIVE: CASE EVENT DATE: 20150806
